FAERS Safety Report 5329953-4 (Version None)
Quarter: 2007Q2

REPORT INFORMATION
  Report Type: 
  Country: None (occurrence: None)
  Receive Date: 20070521
  Receipt Date: 20070511
  Transmission Date: 20071010
  Serious: Yes (Other)
  Sender: FDA-Public Use
  Company Number: US-JNJFOC-20070504405

PATIENT
  Age: 40 Year
  Sex: Female

DRUGS (2)
  1. LEVAQUIN [Suspect]
     Indication: DEVICE RELATED INFECTION
     Route: 042
  2. LEVAQUIN [Suspect]
     Route: 065

REACTIONS (5)
  - ABDOMINAL PAIN [None]
  - DEAFNESS [None]
  - DEHYDRATION [None]
  - NAUSEA [None]
  - RENAL FAILURE [None]
